FAERS Safety Report 16649299 (Version 2)
Quarter: 2019Q3

REPORT INFORMATION
  Report Type: Spontaneous
  Country: BR (occurrence: BR)
  Receive Date: 20190730
  Receipt Date: 20190916
  Transmission Date: 20191004
  Serious: Yes (Death, Other)
  Sender: FDA-Public Use
  Company Number: BR-BIOMARINAP-BR-2019-124916

PATIENT

DRUGS (1)
  1. ALDURAZYME [Suspect]
     Active Substance: LARONIDASE
     Indication: PRODUCT USED FOR UNKNOWN INDICATION
     Route: 041

REACTIONS (5)
  - Disease progression [Fatal]
  - Unevaluable event [Unknown]
  - Asthenia [Unknown]
  - Respiratory failure [Unknown]
  - Respiratory tract infection [Unknown]
